FAERS Safety Report 15561707 (Version 1)
Quarter: 2018Q4

REPORT INFORMATION
  Report Type: Spontaneous
  Country: DE (occurrence: DE)
  Receive Date: 20181029
  Receipt Date: 20181029
  Transmission Date: 20190205
  Serious: Yes (Other)
  Sender: FDA-Public Use
  Company Number: DE-PFIZER INC-2018434813

PATIENT
  Age: 39 Year
  Sex: Female

DRUGS (3)
  1. VENLAFAXINE HCL [Suspect]
     Active Substance: VENLAFAXINE HYDROCHLORIDE
     Dosage: 90 CAPSULES OVER DAYS
     Route: 048
  2. PROMETHAZINE [Suspect]
     Active Substance: PROMETHAZINE\PROMETHAZINE HYDROCHLORIDE
     Dosage: 30 ML, UNK
     Route: 048
  3. IBUBETA [Suspect]
     Active Substance: IBUPROFEN
     Dosage: 6400 MG, SINGLE
     Route: 048

REACTIONS (5)
  - Aphasia [Unknown]
  - Confusional state [Unknown]
  - Mydriasis [Unknown]
  - Overdose [Unknown]
  - Sinus tachycardia [Unknown]
